FAERS Safety Report 7907096 (Version 3)
Quarter: 2014Q1

REPORT INFORMATION
  Report Type: Spontaneous
  Country: US (occurrence: US)
  Receive Date: 20110420
  Receipt Date: 20140121
  Transmission Date: 20141002
  Serious: Yes (Hospitalization, Other)
  Sender: FDA-Public Use
  Company Number: US-BAYER-2011-022083

PATIENT
  Age: 33 Year
  Sex: Female
  Weight: 74.83 kg

DRUGS (30)
  1. YAZ [Suspect]
     Dosage: UNK, QD
     Route: 048
     Dates: start: 200711, end: 200901
  2. KETOTIFEN [Concomitant]
     Dosage: 0.025 %, UNK
     Route: 047
  3. METRONIDAZOLE [Concomitant]
     Dosage: 500 MG, UNK
     Route: 048
  4. NAPROXEN [Concomitant]
     Dosage: 375 MG, UNK
     Route: 048
  5. IMITREX [Concomitant]
     Dosage: 100 MG, UNK
     Route: 048
  6. NICOTINE [Concomitant]
     Dosage: 14 MG, UNK
     Route: 061
  7. ACETAMINOPHEN W/HYDROCODONE [Concomitant]
     Dosage: UNK UNK, PRN
     Route: 048
  8. LITHIUM CARBONATE [Concomitant]
     Dosage: 300 MG, BID
     Route: 048
  9. AMOXICILLIN [Concomitant]
     Dosage: 500 MG, QID
     Route: 048
  10. TRIAMCINOLONE [Concomitant]
     Dosage: 0.5 %, BID
     Route: 061
  11. RISPERDAL [Concomitant]
     Dosage: 1 MG, BID
     Route: 048
  12. ACETAMINOPHEN W/CODEINE [Concomitant]
     Dosage: UNK UNK, PRN
     Route: 048
  13. PRILOSEC [Concomitant]
     Dosage: DAILY DOSE 20 MG
     Route: 048
  14. ALLEGRA-D [Concomitant]
     Route: 048
  15. PRO-AIR [Concomitant]
     Dosage: 2 PUFF(S), Q4HR
  16. NEXIUM [Concomitant]
     Dosage: DAILY DOSE 40 MG
     Route: 048
  17. FIORICET [Concomitant]
     Dosage: UNK UNK, PRN
     Route: 048
  18. BUMEX [Concomitant]
     Dosage: 0.5 MG, PRN
     Route: 048
  19. SEROQUEL [Concomitant]
     Dosage: 400 MG, ONCE
     Route: 048
  20. TRILEPTAL [Concomitant]
     Dosage: 600 MG, ONCE
     Route: 048
  21. PERCOCET [Concomitant]
     Dosage: UNK
     Route: 048
  22. TRIAMCINOLONE [Concomitant]
     Dosage: UNK
     Route: 061
  23. ALBUTEROL [Concomitant]
     Dosage: UNK UNK, PRN
  24. ATROVENT [Concomitant]
     Dosage: UNK UNK, PRN
  25. ZOCOR [Concomitant]
     Dosage: 40 MG, ONCE
     Route: 048
  26. DILAUDID [Concomitant]
     Dosage: DAILY DOSE 1 MG
     Route: 042
  27. BENADRYL [Concomitant]
     Dosage: DAILY DOSE 12.5 MG
     Route: 042
  28. REGLAN [Concomitant]
     Dosage: 20 MG, UNK
     Route: 042
  29. ZOFRAN [Concomitant]
     Dosage: 4 MG, UNK
     Route: 042
  30. PREDNISONE [Concomitant]
     Dosage: 40 MG, UNK
     Route: 048

REACTIONS (8)
  - Dyspepsia [Recovered/Resolved]
  - Cholelithiasis [Recovered/Resolved]
  - Abdominal pain upper [Recovered/Resolved]
  - Hepatic enzyme increased [Recovered/Resolved]
  - Chest pain [Recovered/Resolved]
  - Palpitations [Unknown]
  - Biliary colic [None]
  - Cholecystitis [None]
